FAERS Safety Report 4675357-7 (Version None)
Quarter: 2005Q2

REPORT INFORMATION
  Report Type: 
  Country: None (occurrence: None)
  Receive Date: 20050527
  Receipt Date: 20050202
  Transmission Date: 20051028
  Serious: No
  Sender: FDA-Public Use
  Company Number: US-BRISTOL-MYERS SQUIBB COMPANY-12849204

PATIENT
  Age: 25 Year
  Sex: Female

DRUGS (1)
  1. ABILIFY [Suspect]
     Indication: BIPOLAR DISORDER
     Dates: start: 20041202, end: 20041209

REACTIONS (3)
  - DYSKINESIA [None]
  - INSOMNIA [None]
  - SPEECH DISORDER [None]
